FAERS Safety Report 14606302 (Version 6)
Quarter: 2021Q4

REPORT INFORMATION
  Report Type: Spontaneous
  Country: JP (occurrence: JP)
  Receive Date: 20180307
  Receipt Date: 20211217
  Transmission Date: 20220304
  Serious: Yes (Death, Hospitalization, Other)
  Sender: FDA-Public Use
  Company Number: JP-UNITED THERAPEUTICS-UNT-2018-003035

PATIENT
  Age: 68 Year
  Sex: Female

DRUGS (29)
  1. REMODULIN [Suspect]
     Active Substance: TREPROSTINIL
     Indication: Portopulmonary hypertension
     Dosage: UNK, CONTINUING
     Route: 041
     Dates: start: 20141007
  2. REMODULIN [Suspect]
     Active Substance: TREPROSTINIL
     Indication: Pulmonary arterial hypertension
     Dosage: 0.190 ?G/KG, CONTINUING
     Route: 041
  3. REMODULIN [Suspect]
     Active Substance: TREPROSTINIL
     Dosage: 0.200 ?G/KG, CONTINUING
     Route: 041
     Dates: end: 2017
  4. REMODULIN [Suspect]
     Active Substance: TREPROSTINIL
     Dosage: 0.250 ?G/KG, CONTINUING
     Route: 041
     Dates: start: 2017, end: 2017
  5. REMODULIN [Suspect]
     Active Substance: TREPROSTINIL
     Dosage: UNK, CONTINUING (DOSE REDUCED)
     Route: 041
     Dates: start: 2017, end: 20180227
  6. ADEMPAS [Suspect]
     Active Substance: RIOCIGUAT
     Indication: Portopulmonary hypertension
     Dosage: UNK
     Route: 048
     Dates: start: 20171114, end: 20180227
  7. ADEMPAS [Suspect]
     Active Substance: RIOCIGUAT
     Indication: Pulmonary arterial hypertension
  8. TRACLEER [Concomitant]
     Active Substance: BOSENTAN
     Indication: Portopulmonary hypertension
     Dosage: UNK
     Route: 048
     Dates: end: 20160622
  9. REVATIO [Concomitant]
     Active Substance: SILDENAFIL CITRATE
     Indication: Portopulmonary hypertension
     Dosage: UNK
     Route: 048
     Dates: end: 20170209
  10. WARFARIN POTASSIUM [Concomitant]
     Active Substance: WARFARIN POTASSIUM
     Indication: Portopulmonary hypertension
     Dosage: UNK
     Route: 048
     Dates: end: 20170410
  11. SPIRONOLACTONE [Concomitant]
     Active Substance: SPIRONOLACTONE
     Indication: Portopulmonary hypertension
     Dosage: UNK
     Route: 048
     Dates: end: 20180227
  12. DIGOXIN [Concomitant]
     Active Substance: DIGOXIN
     Indication: Portopulmonary hypertension
     Dosage: UNK
     Route: 048
     Dates: end: 20180227
  13. FUROSEMIDE [Concomitant]
     Active Substance: FUROSEMIDE
     Indication: Portopulmonary hypertension
     Dosage: UNK
     Route: 048
     Dates: end: 20180227
  14. POLAPREZINC [Concomitant]
     Active Substance: POLAPREZINC
     Indication: Product used for unknown indication
     Dosage: UNK
     Route: 048
     Dates: end: 20170531
  15. SLOW-K [Concomitant]
     Active Substance: POTASSIUM CHLORIDE
     Indication: Product used for unknown indication
     Dosage: UNK
     Route: 048
  16. TRICHLORMETHIAZIDE [Concomitant]
     Active Substance: TRICHLORMETHIAZIDE
     Indication: Product used for unknown indication
     Dosage: UNK
     Route: 048
     Dates: end: 20180227
  17. ALLOPURINOL [Concomitant]
     Active Substance: ALLOPURINOL
     Indication: Product used for unknown indication
     Dosage: UNK
     Route: 048
     Dates: end: 20170531
  18. LOXOPROFEN SODIUM [Concomitant]
     Active Substance: LOXOPROFEN SODIUM
     Indication: Product used for unknown indication
     Dosage: UNK
     Route: 048
     Dates: end: 20141217
  19. SODIUM FERROUS CITRATE [Concomitant]
     Active Substance: SODIUM FERROUS CITRATE
     Indication: Anaemia
     Dosage: UNK
     Route: 048
     Dates: start: 20160113, end: 20160129
  20. OPSUMIT [Concomitant]
     Active Substance: MACITENTAN
     Indication: Portopulmonary hypertension
     Dosage: UNK
     Route: 048
     Dates: start: 20160623, end: 20180227
  21. MAGNESIUM OXIDE [Concomitant]
     Active Substance: MAGNESIUM OXIDE
     Indication: Product used for unknown indication
     Dosage: UNK
     Route: 048
     Dates: start: 20120313, end: 20180227
  22. NEXIUM [Concomitant]
     Active Substance: ESOMEPRAZOLE MAGNESIUM
     Indication: Product used for unknown indication
     Dosage: UNK
     Route: 048
     Dates: start: 20130212, end: 20180227
  23. LOXOPROFEN SODIUM [Concomitant]
     Active Substance: LOXOPROFEN SODIUM
     Indication: Product used for unknown indication
     Dosage: UNK
     Route: 051
     Dates: start: 20140408, end: 20171207
  24. FERROUS SULFATE [Concomitant]
     Active Substance: FERROUS SULFATE
     Indication: Product used for unknown indication
     Dosage: UNK
     Route: 048
     Dates: start: 20140213
  25. MOSAPRIDE CITRATE [Concomitant]
     Active Substance: MOSAPRIDE CITRATE
     Indication: Product used for unknown indication
     Dosage: UNK
     Route: 048
     Dates: start: 20120313, end: 20180227
  26. ADCIRCA [Concomitant]
     Active Substance: TADALAFIL
     Indication: Portopulmonary hypertension
     Dosage: UNK
     Route: 048
     Dates: start: 20170210, end: 20171113
  27. AMINO ACIDS, SOURCE UNSPECIFIED [Concomitant]
     Active Substance: AMINO ACIDS, SOURCE UNSPECIFIED
     Indication: Hepatic failure
     Dosage: UNK
     Route: 048
     Dates: start: 20171113, end: 20180227
  28. AMITIZA [Concomitant]
     Active Substance: LUBIPROSTONE
     Indication: Product used for unknown indication
     Dosage: UNK
     Route: 048
     Dates: start: 20171209, end: 20180227
  29. SAMSCA [Concomitant]
     Active Substance: TOLVAPTAN
     Indication: Product used for unknown indication
     Dosage: UNK
     Route: 048
     Dates: start: 20171206, end: 20180227

REACTIONS (7)
  - Cardio-respiratory arrest [Fatal]
  - Renal failure [Fatal]
  - Hepatic cirrhosis [Fatal]
  - Colon cancer [Recovering/Resolving]
  - Brain natriuretic peptide increased [Recovering/Resolving]
  - Abdominal distension [Not Recovered/Not Resolved]
  - Hypotension [Not Recovered/Not Resolved]

NARRATIVE: CASE EVENT DATE: 20170202
